FAERS Safety Report 17825216 (Version 3)
Quarter: 2020Q3

REPORT INFORMATION
  Report Type: Spontaneous
  Country: CN (occurrence: CN)
  Receive Date: 20200526
  Receipt Date: 20200612
  Transmission Date: 20201104
  Serious: Yes (Life-Threatening, Hospitalization)
  Sender: FDA-Public Use
  Company Number: CN-CELGENEUS-CHN-20200507412

PATIENT
  Age: 67 Year
  Sex: Male
  Weight: 44 kg

DRUGS (8)
  1. CARBOPLATIN. [Suspect]
     Active Substance: CARBOPLATIN
     Dosage: AUC=5
     Route: 041
     Dates: start: 20200420, end: 20200420
  2. SERPLULIMAB. [Suspect]
     Active Substance: SERPLULIMAB
     Dosage: 200 MILLIGRAM
     Route: 041
     Dates: start: 20200420, end: 20200420
  3. ABRAXANE [Suspect]
     Active Substance: PACLITAXEL
     Indication: SQUAMOUS CELL CARCINOMA OF LUNG
     Dosage: 143 MILLIGRAM
     Route: 041
     Dates: start: 20200325, end: 20200325
  4. ABRAXANE [Suspect]
     Active Substance: PACLITAXEL
     Route: 041
     Dates: start: 20200420, end: 20200420
  5. ABRAXANE [Suspect]
     Active Substance: PACLITAXEL
     Dosage: 149 MILLIGRAM
     Route: 041
     Dates: start: 20200410, end: 20200410
  6. SERPLULIMAB. [Suspect]
     Active Substance: SERPLULIMAB
     Indication: SQUAMOUS CELL CARCINOMA OF LUNG
     Dosage: 200 MILLIGRAM
     Route: 041
     Dates: start: 20200325, end: 20200325
  7. ABRAXANE [Suspect]
     Active Substance: PACLITAXEL
     Dosage: 149 MILLIGRAM
     Route: 041
     Dates: start: 20200403, end: 20200403
  8. CARBOPLATIN. [Suspect]
     Active Substance: CARBOPLATIN
     Indication: SQUAMOUS CELL CARCINOMA OF LUNG
     Dosage: AUC=5
     Route: 041
     Dates: start: 20200325, end: 20200325

REACTIONS (2)
  - Pneumonia [Not Recovered/Not Resolved]
  - Anaemia [Not Recovered/Not Resolved]

NARRATIVE: CASE EVENT DATE: 20200401
